FAERS Safety Report 4344405-6 (Version None)
Quarter: 2004Q2

REPORT INFORMATION
  Report Type: 
  Country: None (occurrence: None)
  Receive Date: 20040421
  Receipt Date: 20040421
  Transmission Date: 20050107
  Serious: Yes (Life-Threatening, Hospitalization)
  Sender: FDA-Public Use
  Company Number: None

PATIENT
  Age: 78 Year
  Sex: Female
  Weight: 67.1 kg

DRUGS (8)
  1. DIGOXIN [Suspect]
     Indication: ATRIAL FIBRILLATION
     Dosage: 0.125 MG QD [CHRONIC]
     Dates: end: 20040107
  2. METOPROLOL [Suspect]
     Indication: HYPERTENSION
     Dosage: 25 MG BID
  3. NORVASC [Concomitant]
  4. PLAVIX [Concomitant]
  5. SYNTHROID [Concomitant]
  6. REMERON [Concomitant]
  7. REGLAN [Concomitant]
  8. NEURONTIN [Concomitant]

REACTIONS (5)
  - ATRIAL FIBRILLATION [None]
  - BLOOD PRESSURE SYSTOLIC INCREASED [None]
  - DIZZINESS [None]
  - FEELING ABNORMAL [None]
  - HEART RATE DECREASED [None]
